FAERS Safety Report 20348080 (Version 2)
Quarter: 2022Q1

REPORT INFORMATION
  Report Type: Other
  Country: CA (occurrence: CA)
  Receive Date: 20220118
  Receipt Date: 20220228
  Transmission Date: 20220423
  Serious: Yes (Life-Threatening, Hospitalization, Other)
  Sender: FDA-Public Use
  Company Number: CA-CELLTRION INC.-2022CA000270

PATIENT

DRUGS (8)
  1. RITUXIMAB [Suspect]
     Active Substance: RITUXIMAB
     Indication: Product used for unknown indication
     Dosage: UNK
     Route: 065
  2. RITUXIMAB [Suspect]
     Active Substance: RITUXIMAB
     Dosage: 1.0 DOSAGE FORM
     Route: 065
  3. RITUXIMAB [Suspect]
     Active Substance: RITUXIMAB
     Dosage: 1.0 DOSAGE FORM
     Route: 065
  4. IMATINIB MESYLATE [Suspect]
     Active Substance: IMATINIB MESYLATE
     Indication: Product used for unknown indication
     Dosage: 96 GRAM, 1 EVERY 1 WEEKS
     Route: 065
  5. IMURAN [Suspect]
     Active Substance: AZATHIOPRINE
     Indication: Immunosuppressant drug therapy
     Route: 065
  6. ELTROMBOPAG OLAMINE [Suspect]
     Active Substance: ELTROMBOPAG OLAMINE
     Indication: Immune thrombocytopenia
     Dosage: 50 MG, 1 EVERY 1 DAYS
     Route: 048
  7. ELTROMBOPAG OLAMINE [Suspect]
     Active Substance: ELTROMBOPAG OLAMINE
     Dosage: 100 MG, 1 EVERY 1 DAYS
     Route: 048
  8. ELTROMBOPAG OLAMINE [Suspect]
     Active Substance: ELTROMBOPAG OLAMINE
     Indication: Immune thrombocytopenia
     Dosage: 50 MG, 1 EVERY 1 DAYS
     Route: 065

REACTIONS (10)
  - Abdominal discomfort [Unknown]
  - Flatulence [Unknown]
  - Non-Hodgkin^s lymphoma unspecified histology aggressive [Unknown]
  - Asthenia [Unknown]
  - Epistaxis [Unknown]
  - Eye infection fungal [Unknown]
  - Platelet count decreased [Unknown]
  - Incorrect dose administered [Unknown]
  - Therapy non-responder [Unknown]
  - Drug ineffective [Unknown]
